FAERS Safety Report 22538877 (Version 1)
Quarter: 2023Q2

REPORT INFORMATION
  Report Type: Spontaneous
  Country: ES (occurrence: ES)
  Receive Date: 20230609
  Receipt Date: 20230609
  Transmission Date: 20230721
  Serious: Yes (Hospitalization, Other)
  Sender: FDA-Public Use
  Company Number: ES-JNJFOC-20230619180

PATIENT
  Age: 56 Year
  Sex: Female

DRUGS (2)
  1. TRABECTEDIN [Suspect]
     Active Substance: TRABECTEDIN
     Indication: Uterine leiomyosarcoma
     Route: 042
     Dates: start: 201910, end: 202202
  2. TRABECTEDIN [Suspect]
     Active Substance: TRABECTEDIN
     Route: 042
     Dates: start: 202203, end: 202209

REACTIONS (3)
  - Embolic stroke [Unknown]
  - Cardiac failure congestive [Unknown]
  - Dilated cardiomyopathy [Unknown]

NARRATIVE: CASE EVENT DATE: 20220201
